FAERS Safety Report 17922573 (Version 5)
Quarter: 2023Q1

REPORT INFORMATION
  Report Type: Report from Study
  Country: IT (occurrence: IT)
  Receive Date: 20200622
  Receipt Date: 20230124
  Transmission Date: 20230418
  Serious: Yes (Hospitalization)
  Sender: FDA-Public Use
  Company Number: NVSC2020IT092647

PATIENT
  Sex: Female
  Weight: 49 kg

DRUGS (17)
  1. NAPORAFENIB [Suspect]
     Active Substance: NAPORAFENIB
     Indication: Malignant melanoma
     Dosage: 400 MG, BID
     Route: 048
     Dates: start: 20200317, end: 20200317
  2. NAPORAFENIB [Suspect]
     Active Substance: NAPORAFENIB
     Dosage: 400 MG, BID
     Route: 048
     Dates: start: 20200319, end: 20200330
  3. NAPORAFENIB [Suspect]
     Active Substance: NAPORAFENIB
     Dosage: 200 MG, BID
     Route: 048
     Dates: start: 20200331, end: 20200401
  4. NAPORAFENIB [Suspect]
     Active Substance: NAPORAFENIB
     Dosage: 100 MG, BID
     Route: 048
     Dates: start: 20200402, end: 20200403
  5. NAPORAFENIB [Suspect]
     Active Substance: NAPORAFENIB
     Dosage: 100 MG, BID
     Route: 048
     Dates: start: 20200404, end: 20200405
  6. TRAMETINIB [Suspect]
     Active Substance: TRAMETINIB
     Indication: Malignant melanoma
     Dosage: 0.5 MG, BID
     Route: 048
     Dates: start: 20200317, end: 20200330
  7. ARMOLIPID [Concomitant]
     Indication: Hypercholesterolaemia
     Dosage: UNK
     Route: 065
     Dates: start: 2017
  8. DEXAMETHASONE [Concomitant]
     Active Substance: DEXAMETHASONE
     Indication: Back pain
     Dosage: UNK
     Route: 065
     Dates: start: 20200304, end: 20200406
  9. FAMOTIDINE [Concomitant]
     Active Substance: FAMOTIDINE
     Indication: Prophylaxis
     Dosage: UNK
     Route: 065
     Dates: start: 20200304, end: 20200417
  10. FAMOTIDINE [Concomitant]
     Active Substance: FAMOTIDINE
     Dosage: UNK
     Route: 065
     Dates: start: 20200422
  11. ACETAMINOPHEN [Concomitant]
     Active Substance: ACETAMINOPHEN
     Indication: Back pain
     Dosage: UNK
     Route: 065
     Dates: start: 20200306, end: 20200315
  12. ACETAMINOPHEN [Concomitant]
     Active Substance: ACETAMINOPHEN
     Dosage: UNK
     Route: 065
     Dates: start: 20200316
  13. NADROPARIN CALCIUM [Concomitant]
     Active Substance: NADROPARIN CALCIUM
     Indication: Thrombosis prophylaxis
     Dosage: 0.6 ML, UNK
     Route: 065
     Dates: start: 20200306
  14. DESOXIMETASONE [Concomitant]
     Active Substance: DESOXIMETASONE
     Indication: Rash
     Dosage: UNK
     Route: 065
     Dates: start: 20200331
  15. DERMATOP [Concomitant]
     Active Substance: PREDNICARBATE
     Indication: Rash
     Dosage: 0.25 %, UNKNOWN
     Route: 065
     Dates: start: 20200331
  16. DEXAMETHASONE [Concomitant]
     Active Substance: DEXAMETHASONE
     Indication: Back pain
     Dosage: UNK
     Route: 065
     Dates: start: 20200407, end: 20200416
  17. OMEPRAZOLE [Concomitant]
     Active Substance: OMEPRAZOLE
     Indication: Back pain
     Dosage: UNK
     Route: 065
     Dates: start: 20200417, end: 20200421

REACTIONS (1)
  - Stevens-Johnson syndrome [Recovering/Resolving]

NARRATIVE: CASE EVENT DATE: 20200403
